FAERS Safety Report 9241504 (Version 1)
Quarter: 2013Q2

REPORT INFORMATION
  Report Type: Spontaneous
  Country: US (occurrence: None)
  Receive Date: 20130419
  Receipt Date: 20130419
  Transmission Date: 20140414
  Serious: Yes (Life-Threatening, Hospitalization)
  Sender: FDA-Public Use
  Company Number: None

PATIENT
  Age: 63 Year
  Sex: Male
  Weight: 112.2 kg

DRUGS (2)
  1. ENOXAPARIN [Suspect]
     Route: 058
     Dates: start: 20130208, end: 20130211
  2. WARFARIN [Suspect]
     Route: 048
     Dates: start: 20130208, end: 20130211

REACTIONS (2)
  - Shock haemorrhagic [None]
  - Retroperitoneal haemorrhage [None]
